FAERS Safety Report 24413063 (Version 2)
Quarter: 2024Q4

REPORT INFORMATION
  Report Type: Spontaneous
  Country: FR (occurrence: FR)
  Receive Date: 20241008
  Receipt Date: 20241204
  Transmission Date: 20250115
  Serious: Yes (Other)
  Sender: ANI
  Company Number: FR-ANIPHARMA-2024-FR-000175

PATIENT
  Age: 78 Year
  Sex: Female

DRUGS (5)
  1. CANDESARTAN CILEXETIL [Suspect]
     Active Substance: CANDESARTAN CILEXETIL
     Indication: Hypertension
     Dosage: 8 MILLIGRAM, 1/DAY
     Route: 048
  2. CRESTOR [Suspect]
     Active Substance: ROSUVASTATIN CALCIUM
     Dosage: 5 MILLIGRAM, 1/DAY
     Route: 048
  3. ZOLPIDEM [Suspect]
     Active Substance: ZOLPIDEM TARTRATE
     Dosage: 10 MILLIGRAM, 1/DAY
     Route: 048
  4. FLECAINIDE [Suspect]
     Active Substance: FLECAINIDE
     Dosage: 150 MILLIGRAM, 1/DAY
     Route: 048
  5. ASPIRIN [Suspect]
     Active Substance: ASPIRIN
     Dosage: 100 MILLIGRAM, 1/DAY
     Route: 048

REACTIONS (6)
  - Linear IgA disease [Unknown]
  - Duodenitis [Unknown]
  - Gastritis [Unknown]
  - Gastritis [Unknown]
  - Dysphonia [Unknown]
  - Odynophagia [Unknown]

NARRATIVE: CASE EVENT DATE: 20200301
